FAERS Safety Report 12176389 (Version 1)
Quarter: 2016Q1

REPORT INFORMATION
  Report Type: Spontaneous
  Country: JP (occurrence: JP)
  Receive Date: 20160315
  Receipt Date: 20160315
  Transmission Date: 20160526
  Serious: Yes (Death, Other)
  Sender: FDA-Public Use
  Company Number: PHHY2016JP033380

PATIENT
  Age: 22 Year

DRUGS (8)
  1. ETOPOSIDE. [Suspect]
     Active Substance: ETOPOSIDE
     Indication: GERM CELL CANCER
     Dosage: 100 MG/M2, ON DAYS 1-5
     Route: 065
  2. IFOSFAMIDE. [Suspect]
     Active Substance: IFOSFAMIDE
     Indication: GERM CELL CANCER
     Dosage: 1.0 MG/M2, ON DAY 1-5
     Route: 065
  3. PACLITAXEL. [Suspect]
     Active Substance: PACLITAXEL
     Indication: GERM CELL CANCER
     Dosage: 175 MG/M2, ON DAY 1
     Route: 065
  4. IRINOTECAN [Suspect]
     Active Substance: IRINOTECAN
     Indication: GERM CELL CANCER
     Dosage: 100 MG/M2, ON DAYS 1 AND 15 (EVERY 4 WEEKS)
     Route: 065
  5. NEDAPLATIN [Suspect]
     Active Substance: NEDAPLATIN
     Indication: GERM CELL CANCER
     Dosage: 100 MG/M2, ON DAY 1 (EVERY 4 WEEKS)
     Route: 065
  6. CISPLATIN. [Suspect]
     Active Substance: CISPLATIN
     Indication: GERM CELL CANCER
     Dosage: 20 MG/M2, ON DAYS 1-5
     Route: 065
  7. IRINOTECAN [Suspect]
     Active Substance: IRINOTECAN
     Indication: METASTATIC LYMPHOMA
  8. BLEOMYCIN [Suspect]
     Active Substance: BLEOMYCIN SULFATE
     Indication: GERM CELL CANCER
     Dosage: 30 MG, MG/BODY ON DAYS 2, 9, 16
     Route: 065

REACTIONS (8)
  - Neutropenia [Unknown]
  - Germ cell cancer [Fatal]
  - Respiratory failure [Fatal]
  - Drug effect incomplete [Fatal]
  - Disease progression [Fatal]
  - Interstitial lung disease [Fatal]
  - Drug resistance [Unknown]
  - Thrombocytopenia [Unknown]
